FAERS Safety Report 5326814-1 (Version None)
Quarter: 2007Q2

REPORT INFORMATION
  Report Type: 
  Country: None (occurrence: None)
  Receive Date: 20070516
  Receipt Date: 20070504
  Transmission Date: 20071010
  Serious: Yes (Other)
  Sender: FDA-Public Use
  Company Number: US-PFIZER INC-2007037984

PATIENT
  Sex: Female
  Weight: 50.8 kg

DRUGS (6)
  1. LIPITOR [Suspect]
     Indication: BLOOD CHOLESTEROL INCREASED
     Dates: start: 20061201, end: 20070301
  2. HYZAAR [Concomitant]
  3. LEVOTHYROXINE SODIUM [Concomitant]
  4. ACETYLSALICYLIC ACID SRT [Concomitant]
  5. CENTRUM [Concomitant]
  6. TYLENOL [Concomitant]

REACTIONS (4)
  - ASTHENIA [None]
  - BALANCE DISORDER [None]
  - MUSCULAR WEAKNESS [None]
  - PAIN IN EXTREMITY [None]
